FAERS Safety Report 16712717 (Version 2)
Quarter: 2019Q4

REPORT INFORMATION
  Report Type: Spontaneous
  Country: US (occurrence: US)
  Receive Date: 20190816
  Receipt Date: 20191025
  Transmission Date: 20200122
  Serious: Yes (Death, Other)
  Sender: FDA-Public Use
  Company Number: US-BRISTOL-MYERS SQUIBB COMPANY-BMS-2019-080972

PATIENT
  Sex: Female
  Weight: 71.21 kg

DRUGS (1)
  1. OPDIVO [Suspect]
     Active Substance: NIVOLUMAB
     Indication: CHOLANGIOCARCINOMA
     Dosage: 240 MILLIGRAM, Q2WK
     Route: 042
     Dates: start: 20190626

REACTIONS (1)
  - Death [Fatal]
